FAERS Safety Report 10983636 (Version 2)
Quarter: 2015Q2

REPORT INFORMATION
  Report Type: Spontaneous
  Country: DE (occurrence: DE)
  Receive Date: 20150403
  Receipt Date: 20150403
  Transmission Date: 20150821
  Serious: Yes (Hospitalization, Other)
  Sender: FDA-Public Use
  Company Number: DE-ABBVIE-14P-062-1315013-00

PATIENT
  Age: 75 Year
  Sex: Male
  Weight: 50 kg

DRUGS (21)
  1. ASPIRIN. [Concomitant]
     Active Substance: ASPIRIN
     Indication: PRODUCT USED FOR UNKNOWN INDICATION
     Dosage: 1-0-0
  2. MOVICOL [Concomitant]
     Active Substance: POLYETHYLENE GLYCOL 3350\POTASSIUM CHLORIDE\SODIUM BICARBONATE\SODIUM CHLORIDE
     Indication: PRODUCT USED FOR UNKNOWN INDICATION
     Dosage: 2 SACHETS IN THE MORNING
  3. TOREM [Concomitant]
     Active Substance: TORSEMIDE
     Indication: PRODUCT USED FOR UNKNOWN INDICATION
     Dosage: 0.5-0-0
  4. REMERGIL [Concomitant]
     Active Substance: MIRTAZAPINE
     Indication: PRODUCT USED FOR UNKNOWN INDICATION
     Dosage: 0-0-1
     Dates: start: 201410
  5. AZILECT [Concomitant]
     Active Substance: RASAGILINE MESYLATE
     Indication: PRODUCT USED FOR UNKNOWN INDICATION
     Dosage: 1-0-0
  6. DUODOPA [Suspect]
     Active Substance: CARBIDOPA\LEVODOPA
     Indication: PARKINSON^S DISEASE
     Dosage: MD: 5.5 ML; CRD: 2.9 ML/H; ED: 2 ML
     Route: 050
     Dates: start: 20131119, end: 201410
  7. LEPONEX [Concomitant]
     Active Substance: CLOZAPINE
     Dosage: 10:00 AND 22:00/ 2-0-2
     Dates: start: 201410
  8. MADOPAR LT [Concomitant]
     Active Substance: BENSERAZIDE HYDROCHLORIDE\LEVODOPA
     Indication: PARKINSON^S DISEASE
     Dosage: ONCE A DY AT 5 AM
  9. DUODOPA [Suspect]
     Active Substance: CARBIDOPA\LEVODOPA
     Dosage: MD: 2.5 ML; CRD: 2.5 ML/H; ED: 2 ML
     Route: 050
     Dates: start: 201410
  10. LEPONEX [Concomitant]
     Active Substance: CLOZAPINE
     Indication: PRODUCT USED FOR UNKNOWN INDICATION
     Dosage: 2-0-0-2
     Dates: start: 201410
  11. MAGNESIUM [Concomitant]
     Active Substance: MAGNESIUM
     Indication: PRODUCT USED FOR UNKNOWN INDICATION
     Dosage: ONE TABLET AT 8 PM
  12. PANTOZOL [Concomitant]
     Active Substance: PANTOPRAZOLE SODIUM
     Indication: PRODUCT USED FOR UNKNOWN INDICATION
  13. SIMVAHEXAL [Concomitant]
     Active Substance: SIMVASTATIN
     Indication: PRODUCT USED FOR UNKNOWN INDICATION
     Dosage: 0-0-1
  14. TAMSULOSIN [Concomitant]
     Active Substance: TAMSULOSIN
     Indication: PRODUCT USED FOR UNKNOWN INDICATION
     Dosage: 0-0-1
  15. TASMAR [Concomitant]
     Active Substance: TOLCAPONE
     Indication: PRODUCT USED FOR UNKNOWN INDICATION
     Route: 048
     Dates: start: 201410
  16. DUODOPA [Suspect]
     Active Substance: CARBIDOPA\LEVODOPA
     Dosage: MD: 2.5ML; CRD: 2.5 ML/H; ED: 2 ML
     Route: 050
     Dates: start: 201410, end: 201410
  17. DUODOPA [Suspect]
     Active Substance: CARBIDOPA\LEVODOPA
     Dosage: MD: 2.5 ML; CRD: 2.3 ML/H; ED: 2 ML
     Route: 050
     Dates: start: 201410, end: 201410
  18. EMSELEX [Concomitant]
     Active Substance: DARIFENACIN HYDROBROMIDE
     Indication: PRODUCT USED FOR UNKNOWN INDICATION
     Dosage: 1-0-0
     Dates: start: 201410
  19. LEVODOPA [Concomitant]
     Active Substance: LEVODOPA
     Indication: PARKINSON^S DISEASE
     Dosage: 100/25 MG ONCE A DAY IN THE EVENING
     Dates: start: 201410
  20. REMERGIL [Concomitant]
     Active Substance: MIRTAZAPINE
     Dosage: 0-0-1
     Dates: start: 201410
  21. OPHTAL Z [Concomitant]
     Indication: PRODUCT USED FOR UNKNOWN INDICATION
     Dosage: THRICE A DAY

REACTIONS (10)
  - Hypokinesia [Recovered/Resolved]
  - Activated partial thromboplastin time prolonged [Unknown]
  - Lipase increased [Unknown]
  - Red blood cell sedimentation rate increased [Unknown]
  - Tremor [Unknown]
  - Grimacing [Unknown]
  - Blood fibrinogen increased [Unknown]
  - Hallucination [Not Recovered/Not Resolved]
  - Lymphocyte count decreased [Unknown]
  - Hyperkinesia [Recovering/Resolving]

NARRATIVE: CASE EVENT DATE: 20140915
